FAERS Safety Report 18966196 (Version 1)
Quarter: 2021Q1

REPORT INFORMATION
  Report Type: Spontaneous
  Country: US (occurrence: US)
  Receive Date: 20210303
  Receipt Date: 20210303
  Transmission Date: 20210420
  Serious: No
  Sender: FDA-Public Use
  Company Number: US-ENDO PHARMACEUTICALS INC-2020-006180

PATIENT
  Age: 60 Year
  Sex: Female
  Weight: 58.96 kg

DRUGS (1)
  1. XIAFLEX [Suspect]
     Active Substance: COLLAGENASE CLOSTRIDIUM HISTOLYTICUM
     Indication: DUPUYTREN^S CONTRACTURE
     Dosage: UNK UNKNOWN, UNKNOWN; LEFT HAND
     Route: 026
     Dates: start: 20200817, end: 20200817

REACTIONS (4)
  - Peripheral swelling [Unknown]
  - Chest pain [Unknown]
  - Pain in extremity [Unknown]
  - Axillary pain [Unknown]

NARRATIVE: CASE EVENT DATE: 202008
